FAERS Safety Report 9066844 (Version 1)
Quarter: 2013Q1

REPORT INFORMATION
  Report Type: Spontaneous
  Country: IT (occurrence: IT)
  Receive Date: 20130214
  Receipt Date: 20130214
  Transmission Date: 20140127
  Serious: Yes (Hospitalization)
  Sender: FDA-Public Use
  Company Number: IT-GLAXOSMITHKLINE-B0867769A

PATIENT
  Age: 62 None
  Sex: Male

DRUGS (7)
  1. WELLBUTRIN [Suspect]
     Indication: PRODUCT USED FOR UNKNOWN INDICATION
     Dosage: 150MG PER DAY
     Route: 048
     Dates: start: 20121019, end: 20130119
  2. GABAPENTIN [Concomitant]
     Dosage: 800MG PER DAY
  3. SEROQUEL [Concomitant]
  4. ZOLOFT [Concomitant]
  5. LOPID [Concomitant]
  6. ANTRA [Concomitant]
  7. TENORMIN [Concomitant]

REACTIONS (2)
  - Convulsion [Unknown]
  - Motor dysfunction [Unknown]
